FAERS Safety Report 17969392 (Version 5)
Quarter: 2020Q3

REPORT INFORMATION
  Report Type: Spontaneous
  Country: DE (occurrence: DE)
  Receive Date: 20200701
  Receipt Date: 20200923
  Transmission Date: 20201103
  Serious: No
  Sender: FDA-Public Use
  Company Number: DE-JNJFOC-20200626857

PATIENT
  Age: 62 Year
  Sex: Male

DRUGS (3)
  1. DUROGESIC SMAT [Suspect]
     Active Substance: FENTANYL
     Indication: PAIN
     Dosage: DUROGESIC PATCH MATRIX STRENGTH:  50.00 MCG/HR,5 PIECE/ PATCH
     Route: 062
     Dates: start: 20200608, end: 20200618
  2. DUROGESIC SMAT [Suspect]
     Active Substance: FENTANYL
     Route: 062
  3. DUROGESIC SMAT [Suspect]
     Active Substance: FENTANYL

REACTIONS (4)
  - Product dose omission issue [Unknown]
  - Inadequate analgesia [Unknown]
  - Wrong technique in product usage process [Unknown]
  - Product adhesion issue [Unknown]

NARRATIVE: CASE EVENT DATE: 20200608
